FAERS Safety Report 21223125 (Version 1)
Quarter: 2022Q3

REPORT INFORMATION
  Report Type: Spontaneous
  Country: US (occurrence: None)
  Receive Date: 20220816
  Receipt Date: 20220816
  Transmission Date: 20221027
  Serious: Yes (Life-Threatening, Hospitalization)
  Sender: FDA-Public Use
  Company Number: None

PATIENT
  Age: 59 Year
  Sex: Male
  Weight: 81 kg

DRUGS (1)
  1. BUPIVACAINE HYDROCHLORIDE [Suspect]
     Active Substance: BUPIVACAINE HYDROCHLORIDE
     Indication: Surgery
     Dosage: 10 MG ONCE SQ
     Route: 058
     Dates: start: 20220628, end: 20220628

REACTIONS (3)
  - Cardiac arrest [None]
  - Hypertension [None]
  - Presyncope [None]

NARRATIVE: CASE EVENT DATE: 20220628
